FAERS Safety Report 4551312-2 (Version None)
Quarter: 2005Q1

REPORT INFORMATION
  Report Type: 
  Country: None (occurrence: None)
  Receive Date: 20050110
  Receipt Date: 20041229
  Transmission Date: 20050727
  Serious: Yes (Hospitalization)
  Sender: FDA-Public Use
  Company Number: 200510001BFR

PATIENT
  Age: 71 Year
  Sex: Male
  Weight: 100 kg

DRUGS (6)
  1. GLUCOR (ACARBOSE) [Suspect]
     Dosage: 100 MG TOTAL DAILY ORAL
     Route: 048
  2. THALIDOMIDE [Suspect]
     Dosage: 100MG TOTAL DAILY ORAL
     Route: 048
     Dates: start: 20040729, end: 20041009
  3. GLUCOPHAGE [Suspect]
     Dosage: 500 MG QD ORAL
     Route: 048
  4. GLYBURIDE [Suspect]
     Dosage: 5 MG TOTAL DAILY ORAL
     Route: 048
  5. CORDARONE [Suspect]
     Dosage: 200 MG TOTAL DAILY ORAL
     Route: 048
  6. PAROXETINE HCL [Suspect]
     Dosage: 20 MG TOTAL DAILY ORAL
     Route: 048

REACTIONS (2)
  - FEBRILE BONE MARROW APLASIA [None]
  - FEBRILE NEUTROPENIA [None]
